FAERS Safety Report 16645145 (Version 1)
Quarter: 2019Q3

REPORT INFORMATION
  Report Type: Spontaneous
  Country: FR (occurrence: FR)
  Receive Date: 20190729
  Receipt Date: 20190729
  Transmission Date: 20191004
  Serious: Yes (Hospitalization)
  Sender: FDA-Public Use
  Company Number: FR-009507513-1907FRA013279

PATIENT
  Age: 10 Year
  Sex: Male
  Weight: 38.2 kg

DRUGS (2)
  1. NEORAL [Interacting]
     Active Substance: CYCLOSPORINE
     Indication: HAEMOPHAGOCYTIC LYMPHOHISTIOCYTOSIS
     Dosage: 140 MILLIGRAM, QD
     Route: 048
     Dates: start: 20190422
  2. NOXAFIL [Suspect]
     Active Substance: POSACONAZOLE
     Indication: INFECTION PROPHYLAXIS
     Dosage: 300 MILLIGRAM, QD
     Route: 048
     Dates: start: 20190619, end: 20190623

REACTIONS (3)
  - Drug interaction [Recovered/Resolved]
  - Product prescribing error [Recovered/Resolved]
  - Drug level increased [Recovered/Resolved]

NARRATIVE: CASE EVENT DATE: 20190619
